FAERS Safety Report 19808784 (Version 2)
Quarter: 2021Q3

REPORT INFORMATION
  Report Type: Spontaneous
  Country: CA (occurrence: CA)
  Receive Date: 20210908
  Receipt Date: 20210916
  Transmission Date: 20211014
  Serious: Yes (Hospitalization, Other)
  Sender: FDA-Public Use
  Company Number: CA-PURDUE-USA-2021-0278642

PATIENT
  Age: 14 Year
  Sex: Female
  Weight: 43 kg

DRUGS (4)
  1. FOQUEST [Suspect]
     Active Substance: METHYLPHENIDATE HYDROCHLORIDE
     Indication: PRODUCT USED FOR UNKNOWN INDICATION
     Dosage: UNK
     Route: 048
  2. FOQUEST [Suspect]
     Active Substance: METHYLPHENIDATE HYDROCHLORIDE
     Dosage: UNK, INGESTED 27?30 TABLETS OF 45 MG (STRENGTH)
     Route: 048
  3. FOQUEST [Suspect]
     Active Substance: METHYLPHENIDATE HYDROCHLORIDE
     Dosage: UNK, INGESTED 27?30 TABLETS OF 45 MG (STRENGTH)
     Route: 048
  4. FOQUEST [Suspect]
     Active Substance: METHYLPHENIDATE HYDROCHLORIDE
     Dosage: UNK
     Route: 048

REACTIONS (4)
  - Intentional overdose [Recovered/Resolved]
  - Intentional self-injury [Recovered/Resolved]
  - Delirium [Unknown]
  - Aggression [Unknown]

NARRATIVE: CASE EVENT DATE: 20210711
